FAERS Safety Report 10210661 (Version 1)
Quarter: 2014Q2

REPORT INFORMATION
  Report Type: Spontaneous
  Country: US (occurrence: None)
  Receive Date: 20140529
  Receipt Date: 20140529
  Transmission Date: 20141212
  Serious: No
  Sender: FDA-Public Use
  Company Number: None

PATIENT
  Age: 85 Year
  Sex: Male
  Weight: 73.48 kg

DRUGS (8)
  1. BEXAROTENE [Suspect]
     Indication: MYCOSIS FUNGOIDES
     Dosage: 2 PILLS QD ORAL
     Route: 048
     Dates: start: 20140516, end: 20140526
  2. CALCIUM+D [Concomitant]
  3. CRESTOR [Concomitant]
  4. METOPROLOL [Concomitant]
  5. MULTIVITAMIN [Concomitant]
  6. NEXIUM [Concomitant]
  7. OMEGA 3 [Concomitant]
  8. RESTORIL [Concomitant]

REACTIONS (3)
  - Oedema [None]
  - Weight increased [None]
  - Oedema peripheral [None]
